FAERS Safety Report 10791651 (Version 2)
Quarter: 2015Q2

REPORT INFORMATION
  Report Type: Report from Study
  Country: US (occurrence: US)
  Receive Date: 20150213
  Receipt Date: 20150518
  Transmission Date: 20150821
  Serious: Yes (Hospitalization)
  Sender: FDA-Public Use
  Company Number: US-BIOGENIDEC-2015BI013810

PATIENT
  Age: 68 Year
  Sex: Female
  Weight: 70 kg

DRUGS (1)
  1. TYSABRI [Suspect]
     Active Substance: NATALIZUMAB
     Indication: MULTIPLE SCLEROSIS
     Route: 042
     Dates: start: 20100316

REACTIONS (3)
  - Atrioventricular block second degree [Recovered/Resolved]
  - Asthenia [Recovered/Resolved]
  - Dyspepsia [Not Recovered/Not Resolved]

NARRATIVE: CASE EVENT DATE: 201410
